FAERS Safety Report 18576496 (Version 1)
Quarter: 2020Q4

REPORT INFORMATION
  Report Type: Spontaneous
  Country: PL (occurrence: PL)
  Receive Date: 20201203
  Receipt Date: 20201203
  Transmission Date: 20210114
  Serious: Yes (Other)
  Sender: FDA-Public Use
  Company Number: PL-PFIZER INC-2020472361

PATIENT
  Age: 54 Year
  Sex: Female

DRUGS (7)
  1. HYDROXYUREA. [Suspect]
     Active Substance: HYDROXYUREA
     Dosage: UNK
     Route: 065
     Dates: start: 20180319
  2. ICLUSIG [Suspect]
     Active Substance: PONATINIB
     Dosage: UNK
     Route: 065
     Dates: start: 20200308, end: 20200503
  3. ICLUSIG [Suspect]
     Active Substance: PONATINIB
     Dosage: 30 MG
     Route: 065
     Dates: start: 20200827
  4. ICLUSIG [Suspect]
     Active Substance: PONATINIB
     Dosage: UNK
     Route: 065
     Dates: start: 20191018, end: 20191203
  5. IMATINIB. [Suspect]
     Active Substance: IMATINIB MESYLATE
     Dosage: 600 MG, QD
     Route: 065
     Dates: start: 20180425
  6. NILOTINIB [Suspect]
     Active Substance: NILOTINIB
     Route: 065
     Dates: start: 20181219
  7. BOSULIF [Suspect]
     Active Substance: BOSUTINIB MONOHYDRATE
     Dosage: UNK
     Route: 065
     Dates: start: 20190402

REACTIONS (6)
  - Thrombocytopenia [Unknown]
  - Pancytopenia [Unknown]
  - Drug intolerance [Unknown]
  - Treatment failure [Unknown]
  - Anaemia [Unknown]
  - Inflammation [Unknown]
